FAERS Safety Report 9471537 (Version 2)
Quarter: 2013Q3

REPORT INFORMATION
  Report Type: Spontaneous
  Country: DE (occurrence: DE)
  Receive Date: 20130822
  Receipt Date: 20130822
  Transmission Date: 20140515
  Serious: Yes (Hospitalization)
  Sender: FDA-Public Use
  Company Number: DE-JUTA-2012-18472

PATIENT
  Age: 29 Year
  Sex: Male
  Weight: 73 kg

DRUGS (3)
  1. CITALOPRAM HYDROBROMIDE (UNKNOWN) [Suspect]
     Indication: DEPRESSION
     Dosage: 20 MG, DAILY
     Route: 048
  2. DEXTROMETHORPHAN HYDROBROMIDE [Suspect]
     Indication: PRODUCT USED FOR UNKNOWN INDICATION
     Dosage: 40 U, IN 3- 4 DAYS
     Route: 048
  3. TAXILAN                            /00162501/ [Concomitant]
     Indication: RESTLESSNESS
     Dosage: 25 MG, TID
     Route: 048

REACTIONS (4)
  - Acute psychosis [Recovering/Resolving]
  - Delusion of grandeur [Recovering/Resolving]
  - Hallucination, visual [Recovering/Resolving]
  - Intentional drug misuse [Recovering/Resolving]
